FAERS Safety Report 13544625 (Version 1)
Quarter: 2017Q2

REPORT INFORMATION
  Report Type: Spontaneous
  Country: FR (occurrence: FR)
  Receive Date: 20170515
  Receipt Date: 20170515
  Transmission Date: 20170830
  Serious: Yes (Death)
  Sender: FDA-Public Use
  Company Number: FR-ORPHAN EUROPE-2020737

PATIENT
  Age: 3 Month
  Sex: Male
  Weight: 6.3 kg

DRUGS (4)
  1. BIOTINE [Concomitant]
     Active Substance: LACTOPEROXIDASE BOVINE\LYSOZYME HYDROCHLORIDE
     Dates: start: 201607
  2. THIAMINE. [Concomitant]
     Active Substance: THIAMINE
     Dates: start: 201607
  3. CARBAGLU [Suspect]
     Active Substance: CARGLUMIC ACID
     Indication: HYPERAMMONAEMIA
     Dates: start: 201604
  4. CARNITINE [Concomitant]
     Active Substance: CARNITINE
     Dates: start: 201604

REACTIONS (1)
  - Congestive cardiomyopathy [Fatal]

NARRATIVE: CASE EVENT DATE: 20160813
